FAERS Safety Report 9408158 (Version 2)
Quarter: 2013Q3

REPORT INFORMATION
  Report Type: Report from Study
  Country: GB (occurrence: GB)
  Receive Date: 20130718
  Receipt Date: 20130724
  Transmission Date: 20140515
  Serious: Yes (Other)
  Sender: FDA-Public Use
  Company Number: GB-GILEAD-2013-0079148

PATIENT
  Age: 40 Year
  Sex: Female

DRUGS (2)
  1. EMTRICITABINE/TENOFOVIR DISOPROXIL FUMARATE [Suspect]
     Indication: HIV INFECTION
     Dosage: 1 DF, QD
     Route: 048
     Dates: start: 20010906
  2. NEVIRAPINE [Suspect]
     Dosage: 400 MG, QD
     Route: 048
     Dates: start: 20100429

REACTIONS (1)
  - Abortion spontaneous [Recovered/Resolved]
